FAERS Safety Report 19112167 (Version 1)
Quarter: 2021Q2

REPORT INFORMATION
  Report Type: Spontaneous
  Country: US (occurrence: US)
  Receive Date: 20210409
  Receipt Date: 20210409
  Transmission Date: 20210717
  Serious: Yes (Hospitalization)
  Sender: FDA-Public Use
  Company Number: None

PATIENT
  Age: 14 Month
  Sex: Male

DRUGS (1)
  1. RIVAROXABAN (RIVAROXABAN 20MG TAB) [Suspect]
     Active Substance: RIVAROXABAN
     Indication: ATRIAL FIBRILLATION
     Route: 048
     Dates: start: 20190314, end: 20210203

REACTIONS (9)
  - Anaemia [None]
  - Pulmonary oedema [None]
  - Haematoma [None]
  - Leukocytosis [None]
  - Dyspnoea [None]
  - Hypotension [None]
  - Oedema peripheral [None]
  - Retroperitoneal haemorrhage [None]
  - Acute kidney injury [None]

NARRATIVE: CASE EVENT DATE: 20210302
